FAERS Safety Report 10041763 (Version 2)
Quarter: 2014Q2

REPORT INFORMATION
  Report Type: Spontaneous
  Country: ES (occurrence: ES)
  Receive Date: 20140327
  Receipt Date: 20140507
  Transmission Date: 20141212
  Serious: Yes (Life-Threatening, Hospitalization)
  Sender: FDA-Public Use
  Company Number: ES-WATSON-2014-05473

PATIENT
  Age: 56 Year
  Sex: Male

DRUGS (8)
  1. EULITOP RETARD [Suspect]
     Indication: DYSLIPIDAEMIA
     Dosage: 400 MG, DAILY
     Route: 048
     Dates: start: 20130510, end: 20130514
  2. NAPROXEN (UNKNOWN) [Suspect]
     Indication: BONE PAIN
     Dosage: 500 MG, TID; 1-1-1
     Route: 048
     Dates: start: 20130510, end: 20130514
  3. SULFASALAZINE (WATSON LABORATORIES) [Suspect]
     Indication: PSORIATIC ARTHROPATHY
     Dosage: 1 G, BID; 2-0-2
     Route: 048
     Dates: start: 20130405, end: 20130514
  4. CLEXANE [Suspect]
     Indication: THROMBOSIS PROPHYLAXIS
     Dosage: 60 MG, DAILY
     Route: 058
     Dates: start: 20130419, end: 20130514
  5. SINERGINA                          /00017401/ [Concomitant]
     Indication: EPILEPSY
     Dosage: 100 MG, BID; 1-0-1
     Route: 048
  6. DEPAKINE                           /00228501/ [Concomitant]
     Indication: EPILEPSY
     Dosage: 200 MG, BID; 1-0-1-0
     Route: 048
     Dates: start: 1993
  7. ENBREL [Concomitant]
     Indication: PSORIATIC ARTHROPATHY
     Dosage: 50 MG, 1/WEEK; ON THURSDAY
     Route: 058
     Dates: start: 201303
  8. NEOTIGASON [Concomitant]
     Indication: PSORIASIS
     Dosage: 2 CAPSULES AT DINNER
     Route: 048
     Dates: start: 201303, end: 20130514

REACTIONS (3)
  - Shock haemorrhagic [Recovered/Resolved]
  - Oesophageal haemorrhage [Not Recovered/Not Resolved]
  - Oesophagitis [Not Recovered/Not Resolved]
